FAERS Safety Report 9239277 (Version 2)
Quarter: 2013Q2

REPORT INFORMATION
  Report Type: Spontaneous
  Country: US (occurrence: US)
  Receive Date: 20130418
  Receipt Date: 20130523
  Transmission Date: 20140414
  Serious: Yes (Death)
  Sender: FDA-Public Use
  Company Number: US-INCYTE CORPORATION-2013IN000755

PATIENT
  Sex: Male

DRUGS (6)
  1. JAKAFI [Suspect]
     Indication: MYELOFIBROSIS
     Dosage: 20 MG, BID
     Route: 048
  2. COSOPT [Concomitant]
  3. ALLOPURINOL [Concomitant]
  4. LIPITOR [Concomitant]
  5. LUMIGAN [Concomitant]
  6. COMBIGAN [Concomitant]

REACTIONS (1)
  - Sarcoma metastatic [Fatal]
